FAERS Safety Report 7508840-7 (Version None)
Quarter: 2011Q2

REPORT INFORMATION
  Report Type: 
  Country: None (occurrence: None)
  Receive Date: 20110527
  Receipt Date: 20110517
  Transmission Date: 20111010
  Serious: Yes (Other)
  Sender: FDA-Public Use
  Company Number: PHHY2011US25060

PATIENT
  Sex: Female
  Weight: 91.61 kg

DRUGS (5)
  1. CALCIUM WITH VITAMIN D [Concomitant]
     Dosage: UNK UKN, UNK
  2. NEXIUM [Concomitant]
     Dosage: UNK UKN, UNK
  3. GILENYA [Suspect]
     Indication: RELAPSING-REMITTING MULTIPLE SCLEROSIS
     Dosage: 0.5 MG, QD
     Route: 048
     Dates: start: 20110118
  4. ORTHO TRI-CYCLEN [Concomitant]
     Dosage: UNK UKN, UNK
  5. BIRTH CONTROL [Concomitant]
     Dosage: UNK UKN, UNK

REACTIONS (2)
  - CARDIAC MURMUR [None]
  - CARDIAC FLUTTER [None]
